FAERS Safety Report 21694094 (Version 7)
Quarter: 2023Q1

REPORT INFORMATION
  Report Type: Spontaneous
  Country: US (occurrence: US)
  Receive Date: 20221207
  Receipt Date: 20230222
  Transmission Date: 20230417
  Serious: No
  Sender: FDA-Public Use
  Company Number: US-ELI_LILLY_AND_COMPANY-US202212000874

PATIENT
  Sex: Female

DRUGS (5)
  1. TADALAFIL [Suspect]
     Active Substance: TADALAFIL
     Indication: Pulmonary arterial hypertension
     Dosage: UNK MG, UNKNOWN
     Route: 065
     Dates: start: 202209
  2. REMODULIN [Suspect]
     Active Substance: TREPROSTINIL
     Indication: Pulmonary arterial hypertension
     Dosage: 20.3 NG/KG/MIN, CONTINUOUS
     Route: 058
     Dates: start: 202209
  3. REMODULIN [Suspect]
     Active Substance: TREPROSTINIL
     Dosage: 26.4NG/KG/MIN, CONTINUOUS
     Route: 058
     Dates: start: 20220913
  4. REMODULIN [Suspect]
     Active Substance: TREPROSTINIL
     Dosage: UNK UNK, UNKNOWN (32.4 NG/KG/MIN)
     Route: 058
  5. REMODULIN [Suspect]
     Active Substance: TREPROSTINIL
     Dosage: UNK UNK, UNKNOWN (34.30 NG/KG/MIN)
     Route: 058

REACTIONS (13)
  - COVID-19 [Recovered/Resolved]
  - Ear pain [Unknown]
  - Visual impairment [Unknown]
  - Dysgeusia [Unknown]
  - Sensitive skin [Unknown]
  - Localised infection [Unknown]
  - Pain [Unknown]
  - Diarrhoea [Unknown]
  - Nausea [Unknown]
  - Vomiting [Unknown]
  - Dizziness [Unknown]
  - Head discomfort [Unknown]
  - Injection site erythema [Unknown]
